FAERS Safety Report 9856099 (Version 1)
Quarter: 2014Q1

REPORT INFORMATION
  Report Type: Spontaneous
  Country: US (occurrence: US)
  Receive Date: 20140130
  Receipt Date: 20140130
  Transmission Date: 20141002
  Serious: No
  Sender: FDA-Public Use
  Company Number: US-009507513-1401USA013880

PATIENT
  Sex: Female

DRUGS (1)
  1. IMPLANON [Suspect]
     Indication: CONTRACEPTION
     Dosage: UNK
     Route: 059
     Dates: start: 2013

REACTIONS (9)
  - Dizziness [Unknown]
  - Headache [Unknown]
  - Weight increased [Unknown]
  - Hot flush [Unknown]
  - Thinking abnormal [Unknown]
  - Anger [Unknown]
  - Mood swings [Unknown]
  - Feeling abnormal [Unknown]
  - Menstruation delayed [Unknown]
